FAERS Safety Report 6519829-9 (Version None)
Quarter: 2009Q4

REPORT INFORMATION
  Report Type: 
  Country: None (occurrence: None)
  Receive Date: 20091228
  Receipt Date: 20091228
  Transmission Date: 20100525
  Serious: No
  Sender: FDA-Public Use
  Company Number: None

PATIENT
  Age: 49 Year
  Sex: Female

DRUGS (1)
  1. PAROXETINE HCL [Suspect]
     Dosage: 12.5MG 1 QD ORAL  (9MOS - 1 YR AGO)
     Route: 048

REACTIONS (1)
  - SUICIDAL IDEATION [None]
